FAERS Safety Report 19520000 (Version 1)
Quarter: 2021Q3

REPORT INFORMATION
  Report Type: Spontaneous
  Country: US (occurrence: US)
  Receive Date: 20210712
  Receipt Date: 20210712
  Transmission Date: 20211014
  Serious: Yes (Other)
  Sender: FDA-Public Use
  Company Number: US-GW PHARMA-202107USGW03312

PATIENT

DRUGS (1)
  1. EPIDIOLEX [Suspect]
     Active Substance: CANNABIDIOL
     Indication: EPILEPSY
     Dosage: 360 MILLIGRAM
     Route: 048
     Dates: start: 20210507

REACTIONS (2)
  - Product use in unapproved indication [Unknown]
  - Status epilepticus [Unknown]

NARRATIVE: CASE EVENT DATE: 20210703
